FAERS Safety Report 5333452-3 (Version None)
Quarter: 2007Q2

REPORT INFORMATION
  Report Type: 
  Country: None (occurrence: None)
  Receive Date: 20070522
  Receipt Date: 20070522
  Transmission Date: 20071010
  Serious: Yes (Death, Hospitalization)
  Sender: FDA-Public Use
  Company Number: None

PATIENT
  Sex: Male
  Weight: 21.4 kg

DRUGS (2)
  1. CAMPTOSAR [Suspect]
     Dosage: 64 MG
     Dates: end: 20041209
  2. VINCRISTINE SULFATE [Suspect]
     Dosage: 1.2 MG
     Dates: end: 20041206

REACTIONS (4)
  - DISEASE PROGRESSION [None]
  - MALIGNANT PLEURAL EFFUSION [None]
  - REFUSAL OF TREATMENT BY RELATIVE [None]
  - RESPIRATORY DISTRESS [None]
